FAERS Safety Report 8521594-0 (Version None)
Quarter: 2012Q3

REPORT INFORMATION
  Report Type: 
  Country: None (occurrence: None)
  Receive Date: 20120719
  Receipt Date: 20120716
  Transmission Date: 20120928
  Serious: Yes (Other)
  Sender: FDA-Public Use
  Company Number: PHEH2012US008496

PATIENT
  Sex: Male

DRUGS (3)
  1. METFORMIN HYDROCHLORIDE [Concomitant]
     Dosage: UNK UKN, UNK
  2. DIOVAN [Suspect]
     Indication: HYPERTENSION
     Dosage: 160 MG, QD
     Route: 048
     Dates: start: 20120401
  3. RITUXAN [Concomitant]
     Dosage: UNK UKN, UNK

REACTIONS (3)
  - HYPERTENSION [None]
  - DIABETES MELLITUS [None]
  - NEOPLASM MALIGNANT [None]
